APPROVED DRUG PRODUCT: BACITRACIN
Active Ingredient: BACITRACIN
Strength: 5,000,000 UNITS/BOT
Dosage Form/Route: POWDER;FOR RX COMPOUNDING
Application: A062456 | Product #001
Applicant: PADDOCK LABORATORIES LLC
Approved: Jul 27, 1983 | RLD: No | RS: No | Type: DISCN